FAERS Safety Report 10595613 (Version 1)
Quarter: 2014Q4

REPORT INFORMATION
  Report Type: Spontaneous
  Country: DK (occurrence: None)
  Receive Date: 20141118
  Receipt Date: 20141118
  Transmission Date: 20150529
  Serious: Yes (Other)
  Sender: FDA-Public Use
  Company Number: 2014046426

PATIENT
  Age: 34 Year
  Sex: Female

DRUGS (1)
  1. DESMOPRESSIN ACETATE. [Suspect]
     Active Substance: DESMOPRESSIN ACETATE
     Indication: POLYURIA

REACTIONS (3)
  - Medication error [None]
  - Product use issue [None]
  - Inappropriate antidiuretic hormone secretion [None]
